FAERS Safety Report 6452665-0 (Version None)
Quarter: 2009Q4

REPORT INFORMATION
  Report Type: 
  Country: None (occurrence: None)
  Receive Date: 20091116
  Receipt Date: 20091029
  Transmission Date: 20100525
  Serious: Yes (Hospitalization)
  Sender: FDA-Public Use
  Company Number: DSA_33568_2009

PATIENT
  Age: 71 Year
  Sex: Female

DRUGS (11)
  1. VASOTEC [Suspect]
     Indication: HYPERTENSION
     Dosage: (5 MG QD ORAL), (DF ORAL)
     Route: 048
     Dates: start: 20000101, end: 20090107
  2. VASOTEC [Suspect]
     Indication: HYPERTENSION
     Dosage: (5 MG QD ORAL), (DF ORAL)
     Route: 048
     Dates: start: 20090113
  3. FUROSEMIDE [Suspect]
     Indication: HYPERTENSION
     Dosage: (40 MG QD ORAL)
     Route: 048
     Dates: end: 20090107
  4. METHYLDOPA [Suspect]
     Indication: HYPERTENSION
     Dosage: (250 MG BID ORAL);  (DF ORAL)
     Route: 048
     Dates: start: 20000101, end: 20090107
  5. METHYLDOPA [Suspect]
     Indication: HYPERTENSION
     Dosage: (250 MG BID ORAL);  (DF ORAL)
     Route: 048
     Dates: end: 20090113
  6. MICARDIS [Suspect]
     Indication: HYPERTENSION
     Dosage: (80 MG QD  ORAL); (DF ORAL)
     Route: 048
     Dates: start: 19980101, end: 20090107
  7. MICARDIS [Suspect]
     Indication: HYPERTENSION
     Dosage: (80 MG QD  ORAL); (DF ORAL)
     Route: 048
     Dates: end: 20090113
  8. ASPIRIN [Concomitant]
  9. DIGITOXIN INJ [Concomitant]
  10. ACTRAPID /00030501/ [Concomitant]
  11. L-THYROXIN [Concomitant]

REACTIONS (11)
  - ACUTE PRERENAL FAILURE [None]
  - ASTHENIA [None]
  - DEHYDRATION [None]
  - DIARRHOEA [None]
  - DIZZINESS [None]
  - ELECTROLYTE IMBALANCE [None]
  - GENERAL PHYSICAL CONDITION ABNORMAL [None]
  - GOITRE [None]
  - HYPOTENSION [None]
  - HYPOTHYROIDISM [None]
  - RENAL FAILURE ACUTE [None]
